FAERS Safety Report 7499156-6 (Version None)
Quarter: 2011Q2

REPORT INFORMATION
  Report Type: 
  Country: None (occurrence: None)
  Receive Date: 20110516
  Receipt Date: 20110429
  Transmission Date: 20111010
  Serious: Yes (Hospitalization)
  Sender: FDA-Public Use
  Company Number: 031014

PATIENT
  Sex: Female

DRUGS (1)
  1. CIMZIA [Suspect]
     Indication: CROHN'S DISEASE
     Dosage: (400 MG 1X/4 WEEKS SUBCUTANEOUS)
     Route: 058
     Dates: start: 20100128

REACTIONS (6)
  - CONDITION AGGRAVATED [None]
  - INTESTINAL STENOSIS [None]
  - GASTROINTESTINAL FISTULA [None]
  - ABSCESS INTESTINAL [None]
  - CROHN'S DISEASE [None]
  - GASTRIC PERFORATION [None]
